FAERS Safety Report 4893274-4 (Version None)
Quarter: 2006Q1

REPORT INFORMATION
  Report Type: 
  Country: None (occurrence: None)
  Receive Date: 20060124
  Receipt Date: 20060116
  Transmission Date: 20060701
  Serious: Yes (Hospitalization, Other)
  Sender: FDA-Public Use
  Company Number: 200610122GDS

PATIENT
  Age: 60 Year
  Sex: Female

DRUGS (3)
  1. AVELOX [Suspect]
     Indication: SINUSITIS
     Dosage: 400 MG, TOTAL DAILY, ORAL
     Route: 048
     Dates: start: 20060112
  2. BETALOC [Concomitant]
  3. NIFUDA [Concomitant]

REACTIONS (8)
  - ANAPHYLACTIC SHOCK [None]
  - FALL [None]
  - GASTROINTESTINAL HAEMORRHAGE [None]
  - LOSS OF CONSCIOUSNESS [None]
  - OEDEMA [None]
  - PRURITUS [None]
  - URINARY INCONTINENCE [None]
  - VOMITING [None]
